FAERS Safety Report 6557738-X (Version None)
Quarter: 2010Q1

REPORT INFORMATION
  Report Type: 
  Country: None (occurrence: None)
  Receive Date: 20100129
  Receipt Date: 20100118
  Transmission Date: 20100710
  Serious: Yes (Death)
  Sender: FDA-Public Use
  Company Number: FR-WYE-H13107310

PATIENT
  Sex: Male

DRUGS (10)
  1. INIPOMP [Suspect]
     Route: 048
  2. FLECAINIDE ACETATE [Suspect]
     Indication: VENTRICULAR ARRHYTHMIA
     Route: 048
  3. APROVEL [Suspect]
     Route: 048
     Dates: end: 20090914
  4. DESFLURANE [Suspect]
     Dosage: UNKNOWN
     Route: 042
     Dates: start: 20090915
  5. CEFAZOLIN [Suspect]
     Route: 042
  6. DIPRIVAN [Suspect]
     Route: 042
     Dates: start: 20090915
  7. SUFENTANIL [Suspect]
     Dosage: UNKNOWN
     Route: 042
     Dates: start: 20090915
  8. TRACRIUM [Suspect]
     Dosage: 40 MG, FREQUENCY UNSPECIFIED
     Route: 042
     Dates: start: 20090915
  9. EUPRESSYL [Suspect]
     Route: 048
  10. PROPRANOLOL [Suspect]
     Route: 048

REACTIONS (3)
  - ELECTROCARDIOGRAM QRS COMPLEX PROLONGED [None]
  - HYPOTENSION [None]
  - VENTRICULAR ARRHYTHMIA [None]
